FAERS Safety Report 9517624 (Version 1)
Quarter: 2013Q3

REPORT INFORMATION
  Report Type: Spontaneous
  Country: VE (occurrence: VE)
  Receive Date: 20130912
  Receipt Date: 20130912
  Transmission Date: 20140515
  Serious: Yes (Death)
  Sender: FDA-Public Use
  Company Number: VE-ROCHE-1274160

PATIENT
  Age: 43 Year
  Sex: Male

DRUGS (5)
  1. RITUXIMAB [Suspect]
     Indication: NON-HODGKIN^S LYMPHOMA
     Route: 065
  2. 5-FLUOROURACIL [Suspect]
     Indication: NON-HODGKIN^S LYMPHOMA
     Route: 065
  3. CYCLOPHOSPHAMIDE [Concomitant]
     Indication: NON-HODGKIN^S LYMPHOMA
  4. PREDNISONE [Concomitant]
     Indication: NON-HODGKIN^S LYMPHOMA
  5. DOXORUBICIN [Concomitant]

REACTIONS (2)
  - Death [Fatal]
  - Disease progression [Fatal]
